FAERS Safety Report 5235209-0 (Version None)
Quarter: 2007Q1

REPORT INFORMATION
  Report Type: 
  Country: None (occurrence: None)
  Receive Date: 20070208
  Receipt Date: 20070208
  Transmission Date: 20070707
  Serious: Yes (Death)
  Sender: FDA-Public Use
  Company Number: None

PATIENT
  Sex: Female

DRUGS (7)
  1. LUCENTIS [Suspect]
     Indication: MACULAR DEGENERATION
     Dosage: 0.5MG INTRAVITREAL
     Route: 048
     Dates: start: 20060720
  2. BENADRYL [Concomitant]
  3. CALCIUM [Concomitant]
  4. CENTRUM [Concomitant]
  5. FOSAMAX [Concomitant]
  6. LIPITOR [Concomitant]
  7. TRIAMTERENE [Concomitant]

REACTIONS (1)
  - DEATH [None]
